FAERS Safety Report 10276929 (Version 1)
Quarter: 2014Q3

REPORT INFORMATION
  Report Type: Spontaneous
  Country: IT (occurrence: IT)
  Receive Date: 20140703
  Receipt Date: 20140703
  Transmission Date: 20150326
  Serious: Yes (Hospitalization)
  Sender: FDA-Public Use
  Company Number: IT-TEVA-491955ISR

PATIENT
  Age: 73 Year
  Sex: Female

DRUGS (2)
  1. OXALIPLATINO ACCORD HEALTHCARE [Suspect]
     Active Substance: OXALIPLATIN
     Indication: COLON CANCER
     Dosage: 130 MILLIGRAM DAILY;
     Route: 041
     Dates: start: 20140605, end: 20140605
  2. FLUORURACILE TEVA [Suspect]
     Active Substance: FLUOROURACIL
     Indication: COLON CANCER
     Dosage: 2500 MILLIGRAM DAILY;
     Route: 041
     Dates: start: 20140605, end: 20140605

REACTIONS (2)
  - Pneumonitis [Recovering/Resolving]
  - Pyrexia [Recovering/Resolving]

NARRATIVE: CASE EVENT DATE: 20140607
